FAERS Safety Report 9799036 (Version 1)
Quarter: 2014Q1

REPORT INFORMATION
  Report Type: Spontaneous
  Country: GB (occurrence: None)
  Receive Date: 20140102
  Receipt Date: 20140102
  Transmission Date: 20141002
  Serious: Yes (Other)
  Sender: FDA-Public Use
  Company Number: SYM-2013-14396

PATIENT
  Age: 50 Year
  Sex: Female

DRUGS (1)
  1. ZYBAN [Suspect]
     Indication: SMOKING CESSATION THERAPY
     Dosage: 150 MG
     Dates: start: 20131102

REACTIONS (5)
  - Suicidal ideation [None]
  - Depressed mood [None]
  - Dizziness [None]
  - Crying [None]
  - Disturbance in attention [None]
